FAERS Safety Report 9157528 (Version 1)
Quarter: 2013Q1

REPORT INFORMATION
  Report Type: Spontaneous
  Country: US (occurrence: None)
  Receive Date: 20130311
  Receipt Date: 20130311
  Transmission Date: 20140127
  Serious: Yes (Hospitalization)
  Sender: FDA-Public Use
  Company Number: None

PATIENT
  Age: 71 Year
  Sex: Female
  Weight: 100 kg

DRUGS (1)
  1. PRADAXA [Suspect]

REACTIONS (8)
  - Rectal haemorrhage [None]
  - Toxicity to various agents [None]
  - Lower gastrointestinal haemorrhage [None]
  - Renal failure acute [None]
  - Anaemia [None]
  - Sepsis [None]
  - Atrial fibrillation [None]
  - International normalised ratio increased [None]
